FAERS Safety Report 21556149 (Version 1)
Quarter: 2022Q4

REPORT INFORMATION
  Report Type: Report from Study
  Country: US (occurrence: US)
  Receive Date: 20221104
  Receipt Date: 20221104
  Transmission Date: 20230112
  Serious: No
  Sender: FDA-Public Use
  Company Number: US-002147023-NVSC2022US249221

PATIENT
  Sex: Male

DRUGS (1)
  1. ENTRESTO [Suspect]
     Active Substance: SACUBITRIL\VALSARTAN
     Indication: Product used for unknown indication
     Dosage: 2.5 DOSAGE FORM (49/51 MG 1 TAB MRNG AND 1.5 TAB AT NIGHT)
     Route: 065

REACTIONS (2)
  - Hypotension [Unknown]
  - Wrong technique in product usage process [Unknown]
